FAERS Safety Report 19038738 (Version 1)
Quarter: 2021Q1

REPORT INFORMATION
  Report Type: Spontaneous
  Country: US (occurrence: US)
  Receive Date: 20210322
  Receipt Date: 20210322
  Transmission Date: 20210420
  Serious: Yes (Other)
  Sender: FDA-Public Use
  Company Number: US-BAYER-2021-104951

PATIENT

DRUGS (1)
  1. ALKA?SELTZER PLUS NIGHT COLD AND FLU FORMULA [Suspect]
     Active Substance: ACETAMINOPHEN\DEXTROMETHORPHAN HYDROBROMIDE\DOXYLAMINE SUCCINATE\PHENYLEPHRINE

REACTIONS (5)
  - SARS-CoV-2 test positive [Unknown]
  - Pain [Unknown]
  - Chills [Unknown]
  - Headache [Unknown]
  - Nasal congestion [Unknown]
